FAERS Safety Report 8781296 (Version 2)
Quarter: 2012Q4

REPORT INFORMATION
  Report Type: 
  Country: ES (occurrence: ES)
  Receive Date: 20120913
  Receipt Date: 20120919
  Transmission Date: 20130627
  Serious: Yes (Life-Threatening, Hospitalization)
  Sender: FDA-Public Use
  Company Number: ES-BAYER-2012-095231

PATIENT
  Age: 82 Year
  Sex: Male

DRUGS (6)
  1. ADIRO [Suspect]
     Dosage: 100 mg, QD
     Route: 048
     Dates: start: 2002, end: 20120123
  2. SINTROM [Interacting]
     Indication: CARDIAC VALVE PROSTHESIS USER
     Route: 048
     Dates: start: 2002
  3. DIGOXINE [Concomitant]
     Indication: ATRIAL FIBRILLATION
     Dosage: 250 mg, QD
     Route: 048
     Dates: start: 2002
  4. PARAPRES [Concomitant]
     Indication: HYPERTENSION
     Dosage: 32 mg, QD
     Route: 048
     Dates: start: 2007, end: 20120123
  5. OSELTAMIVIR [Concomitant]
     Indication: RESPIRATORY TRACT INFECTION
     Dosage: 75 mg, QD
     Route: 048
     Dates: start: 20120102, end: 20120106
  6. LEVOFLOXACIN [Concomitant]
     Indication: RESPIRATORY TRACT INFECTION
     Dosage: 500 mg, QD
     Route: 048
     Dates: start: 20120102, end: 20120111

REACTIONS (4)
  - Duodenal ulcer haemorrhage [Recovered/Resolved]
  - Anaemia [Recovered/Resolved]
  - Angina pectoris [Recovered/Resolved]
  - Acute prerenal failure [Recovered/Resolved]
